FAERS Safety Report 8936099 (Version 1)
Quarter: 2012Q4

REPORT INFORMATION
  Report Type: 
  Country: US (occurrence: US)
  Receive Date: 20121130
  Receipt Date: 20121130
  Transmission Date: 20130627
  Serious: No
  Sender: FDA-Public Use
  Company Number: US-ABBOTT-12P-163-0988817-00

PATIENT
  Age: 41 Year
  Sex: Male
  Weight: 77.18 kg

DRUGS (4)
  1. ANDROGEL [Suspect]
     Indication: BLOOD TESTOSTERONE DECREASED
     Dosage: 2 Pump actuations per day.
     Dates: start: 20120922
  2. EXCEDRIN MIGRAINE [Suspect]
     Indication: MIGRAINE
     Dates: start: 20120922, end: 20120924
  3. THYROID MEDICATION [Concomitant]
     Indication: HYPOTHYROIDISM
  4. CHOLESTEROL MEDICATION [Concomitant]
     Indication: BLOOD CHOLESTEROL INCREASED

REACTIONS (2)
  - Mood altered [Not Recovered/Not Resolved]
  - Heart rate increased [Recovering/Resolving]
